FAERS Safety Report 18305118 (Version 1)
Quarter: 2020Q3

REPORT INFORMATION
  Report Type: Spontaneous
  Country: FR (occurrence: FR)
  Receive Date: 20200924
  Receipt Date: 20200924
  Transmission Date: 20201103
  Serious: Yes (Life-Threatening)
  Sender: FDA-Public Use
  Company Number: NVSC2020FR257451

PATIENT
  Age: 62 Year
  Sex: Female

DRUGS (2)
  1. NICORANDIL [Suspect]
     Active Substance: NICORANDIL
     Indication: WRONG PATIENT RECEIVED PRODUCT
     Dosage: 10 MG
     Route: 048
     Dates: start: 20191016, end: 20191016
  2. NADOLOL. [Suspect]
     Active Substance: NADOLOL
     Indication: WRONG PATIENT RECEIVED PRODUCT
     Dosage: 80 MG
     Route: 048
     Dates: start: 20191016, end: 20191016

REACTIONS (3)
  - Product administration error [Recovered/Resolved]
  - Cardiogenic shock [Recovered/Resolved]
  - Wrong patient received product [Recovered/Resolved]

NARRATIVE: CASE EVENT DATE: 20191016
